FAERS Safety Report 4477163-5 (Version None)
Quarter: 2004Q4

REPORT INFORMATION
  Report Type: 
  Country: None (occurrence: None)
  Receive Date: 20041018
  Receipt Date: 20011025
  Transmission Date: 20050328
  Serious: Yes (Life-Threatening, Hospitalization, Disabling)
  Sender: FDA-Public Use
  Company Number: US-MERCK-01104491

PATIENT
  Age: 41 Year
  Sex: Female
  Weight: 50 kg

DRUGS (6)
  1. TYLENOL [Concomitant]
     Indication: HEADACHE
     Route: 065
  2. TAVIST D [Concomitant]
     Indication: INFLUENZA
     Route: 065
     Dates: start: 20010319
  3. AFRIN [Concomitant]
     Route: 065
     Dates: start: 20010301
  4. VIOXX [Suspect]
     Indication: OSTEOARTHRITIS
     Route: 048
     Dates: start: 19991101, end: 20010301
  5. VIOXX [Suspect]
     Route: 048
     Dates: start: 20010601
  6. VIOXX [Suspect]
     Route: 048
     Dates: start: 20010101, end: 20010601

REACTIONS (17)
  - ABDOMINAL PAIN UPPER [None]
  - ANXIETY [None]
  - BREAST MASS [None]
  - CARDIAC MURMUR [None]
  - DISTURBANCE IN ATTENTION [None]
  - FATIGUE [None]
  - FLATULENCE [None]
  - FUNGAL INFECTION [None]
  - HEADACHE [None]
  - HYPERCALCAEMIA [None]
  - HYPERTENSION [None]
  - HYPOAESTHESIA [None]
  - NAUSEA [None]
  - RESPIRATORY DISORDER [None]
  - SUBARACHNOID HAEMORRHAGE [None]
  - URTICARIA [None]
  - VOMITING [None]
